FAERS Safety Report 17083627 (Version 1)
Quarter: 2019Q4

REPORT INFORMATION
  Report Type: Spontaneous
  Country: US (occurrence: US)
  Receive Date: 20191127
  Receipt Date: 20191127
  Transmission Date: 20200122
  Serious: No
  Sender: FDA-Public Use
  Company Number: US-BRISTOL-MYERS SQUIBB COMPANY-BMS-2019-114572

PATIENT
  Sex: Female
  Weight: 56.69 kg

DRUGS (1)
  1. ELIQUIS [Suspect]
     Active Substance: APIXABAN
     Indication: TACHYCARDIA
     Dosage: 5 MILLIGRAM, BID
     Route: 065

REACTIONS (3)
  - Intentional product use issue [Unknown]
  - Bronchitis [Recovering/Resolving]
  - Fatigue [Unknown]
